FAERS Safety Report 7170302-7 (Version None)
Quarter: 2010Q4

REPORT INFORMATION
  Report Type: 
  Country: None (occurrence: None)
  Receive Date: 20101217
  Receipt Date: 20101026
  Transmission Date: 20110411
  Serious: No
  Sender: FDA-Public Use
  Company Number: A0886412A

PATIENT
  Age: 15 Year
  Sex: Male

DRUGS (4)
  1. LAMICTAL [Suspect]
     Indication: SCHIZOAFFECTIVE DISORDER
     Dosage: 200MG PER DAY
     Route: 048
     Dates: start: 20100908, end: 20101011
  2. SEROQUEL [Concomitant]
  3. STRATTERA [Concomitant]
  4. GLUCOPHAGE [Concomitant]

REACTIONS (1)
  - RASH ERYTHEMATOUS [None]
